FAERS Safety Report 4551821-6 (Version None)
Quarter: 2005Q1

REPORT INFORMATION
  Report Type: 
  Country: None (occurrence: None)
  Receive Date: 20050110
  Receipt Date: 20041228
  Transmission Date: 20050727
  Serious: Yes (Death, Other)
  Sender: FDA-Public Use
  Company Number: 2004-BP-11357RO

PATIENT
  Age: 37 Year
  Sex: Male

DRUGS (7)
  1. LEUCOVORIN CALCIUM [Suspect]
     Indication: COLON CANCER
     Dosage: 75 MG/DAY, PO
     Route: 048
     Dates: start: 20040720, end: 20040809
  2. UFT [Suspect]
     Indication: COLON CANCER
     Dosage: 4 CAPSULES/DAY, PO
     Route: 048
     Dates: start: 20040720, end: 20040809
  3. OXYCONTIN [Concomitant]
  4. NOVAMIN (AMIKACIN SULFATE) [Concomitant]
  5. SELBEX (TEPRENONE) [Concomitant]
  6. FERO-GRADUMET (FERROUS SULFATE) [Concomitant]
  7. ZOFRAN [Concomitant]

REACTIONS (5)
  - COLON CANCER [None]
  - HYDRONEPHROSIS [None]
  - MALIGNANT NEOPLASM PROGRESSION [None]
  - RENAL IMPAIRMENT [None]
  - STENT OCCLUSION [None]
